FAERS Safety Report 13627399 (Version 1)
Quarter: 2017Q2

REPORT INFORMATION
  Report Type: Spontaneous
  Country: US (occurrence: US)
  Receive Date: 20170608
  Receipt Date: 20170608
  Transmission Date: 20170830
  Serious: No
  Sender: FDA-Public Use
  Company Number: None

PATIENT
  Age: 38 Year
  Sex: Male
  Weight: 108.05 kg

DRUGS (1)
  1. SUBOXONE [Suspect]
     Active Substance: BUPRENORPHINE HYDROCHLORIDE\NALOXONE HYDROCHLORIDE
     Indication: DRUG USE DISORDER
     Dosage: 8-2 MG TABLETS 1 BID SUBLINGUAL
     Route: 060
     Dates: start: 20170508

REACTIONS (4)
  - Urticaria [None]
  - Vomiting [None]
  - Ear pain [None]
  - Pruritus genital [None]
